FAERS Safety Report 8765843 (Version 2)
Quarter: 2013Q1

REPORT INFORMATION
  Report Type: Spontaneous
  Country: US (occurrence: US)
  Receive Date: 20120905
  Receipt Date: 20130110
  Transmission Date: 20140127
  Serious: Yes (Hospitalization)
  Sender: FDA-Public Use
  Company Number: US-BAYER-2012-090629

PATIENT
  Age: 32 Year
  Sex: Female

DRUGS (6)
  1. YASMIN [Suspect]
     Indication: ORAL CONTRACEPTION
  2. WELLBUTRIN [Concomitant]
  3. LAMICTAL [Concomitant]
  4. AMBIEN [Concomitant]
  5. PREVACID [Concomitant]
  6. NORCO [Concomitant]

REACTIONS (2)
  - Deep vein thrombosis [Recovered/Resolved]
  - Pulmonary embolism [Recovered/Resolved]
